FAERS Safety Report 7150753-7 (Version None)
Quarter: 2010Q4

REPORT INFORMATION
  Report Type: 
  Country: None (occurrence: None)
  Receive Date: 20101124
  Receipt Date: 20101112
  Transmission Date: 20110411
  Serious: Yes (Death)
  Sender: FDA-Public Use
  Company Number: 011886

PATIENT
  Age: 50 Year
  Sex: Female

DRUGS (7)
  1. BUSULFEX [Suspect]
     Indication: BONE MARROW CONDITIONING REGIMEN
     Dosage: 6.4 MG/KG INTRAVENOUS
     Route: 042
  2. CLADRIBINE [Concomitant]
  3. ALEMTUZUMAB [Concomitant]
  4. CYCLOSPORINE [Concomitant]
  5. ACYCLOVIR [Concomitant]
  6. PENICLINE (AMPICILLIN SODIUM) [Concomitant]
  7. TRIMETOPRIM-SULFA (SULFAMETHOXAZOLE, TRIMETHOPRIM) [Concomitant]

REACTIONS (2)
  - MALIGNANT NEOPLASM PROGRESSION [None]
  - NON-HODGKIN'S LYMPHOMA [None]
